FAERS Safety Report 21853611 (Version 3)
Quarter: 2023Q1

REPORT INFORMATION
  Report Type: Spontaneous
  Country: PT (occurrence: PT)
  Receive Date: 20230112
  Receipt Date: 20230227
  Transmission Date: 20230418
  Serious: Yes (Hospitalization, Other)
  Sender: FDA-Public Use
  Company Number: PT-Accord-287861

PATIENT
  Age: 85 Year
  Sex: Female

DRUGS (2)
  1. METHOTREXATE [Suspect]
     Active Substance: METHOTREXATE
     Indication: Rheumatoid arthritis
     Dosage: 15 MG/WEEK
     Route: 065
  2. PREDNISOLONE [Concomitant]
     Active Substance: PREDNISOLONE
     Indication: Rheumatoid arthritis
     Dosage: 7.5 MG/DAY
     Route: 065

REACTIONS (5)
  - Vitamin B12 deficiency [Unknown]
  - Folate deficiency [Unknown]
  - Pancytopenia [Recovered/Resolved]
  - Febrile neutropenia [Unknown]
  - Stomatitis [Recovered/Resolved]
